FAERS Safety Report 20629506 (Version 1)
Quarter: 2022Q1

REPORT INFORMATION
  Report Type: Report from Study
  Country: US (occurrence: None)
  Receive Date: 20220323
  Receipt Date: 20220323
  Transmission Date: 20220423
  Serious: Yes (Other)
  Sender: FDA-Public Use
  Company Number: US-Eisai Medical Research-EC-2022-109208

PATIENT
  Age: 79 Year
  Sex: Female

DRUGS (2)
  1. LENVIMA [Suspect]
     Active Substance: LENVATINIB
     Indication: Endometrial cancer
     Route: 048
     Dates: start: 20220209, end: 20220314
  2. KEYTRUDA [Concomitant]
     Active Substance: PEMBROLIZUMAB

REACTIONS (9)
  - Pulmonary embolism [Unknown]
  - Blood pressure increased [Unknown]
  - Dysphonia [Unknown]
  - Nasal discomfort [Recovered/Resolved]
  - Dry throat [Unknown]
  - Oral herpes [Unknown]
  - Dehydration [Unknown]
  - Dyspnoea [Unknown]
  - Arthropathy [Unknown]

NARRATIVE: CASE EVENT DATE: 20220101
